FAERS Safety Report 19171036 (Version 2)
Quarter: 2021Q2

REPORT INFORMATION
  Report Type: Spontaneous
  Country: US (occurrence: US)
  Receive Date: 20210422
  Receipt Date: 20210522
  Transmission Date: 20210717
  Serious: No
  Sender: FDA-Public Use
  Company Number: US-ORGANON-O2104USA001507

PATIENT
  Age: 29 Year
  Sex: Female
  Weight: 101.13 kg

DRUGS (1)
  1. NEXPLANON [Suspect]
     Active Substance: ETONOGESTREL
     Indication: CONTRACEPTION
     Dosage: 68 MILLIGRAM, ONE TIME
     Route: 059
     Dates: start: 20210426

REACTIONS (5)
  - Heavy menstrual bleeding [Unknown]
  - Mood altered [Unknown]
  - Emotional disorder [Unknown]
  - Dysmenorrhoea [Unknown]
  - Treatment failure [Unknown]

NARRATIVE: CASE EVENT DATE: 202104
